FAERS Safety Report 9465545 (Version 1)
Quarter: 2013Q3

REPORT INFORMATION
  Report Type: Spontaneous
  Country: US (occurrence: US)
  Receive Date: 20130820
  Receipt Date: 20130820
  Transmission Date: 20140515
  Serious: No
  Sender: FDA-Public Use
  Company Number: US-TEVA-426775USA

PATIENT
  Sex: Female
  Weight: 59.93 kg

DRUGS (4)
  1. QNASL [Suspect]
     Route: 055
  2. PREVACID [Suspect]
  3. ARMORTHYROID [Concomitant]
  4. MULTIVITAMIN [Concomitant]

REACTIONS (1)
  - Malaise [Not Recovered/Not Resolved]
